FAERS Safety Report 15728864 (Version 1)
Quarter: 2018Q4

REPORT INFORMATION
  Report Type: Spontaneous
  Country: US (occurrence: US)
  Receive Date: 20181217
  Receipt Date: 20181217
  Transmission Date: 20190205
  Serious: Yes (Life-Threatening, Hospitalization)
  Sender: FDA-Public Use
  Company Number: PHHY2018US186919

PATIENT
  Age: 73 Year
  Sex: Female

DRUGS (1)
  1. AMIODARONE [Suspect]
     Active Substance: AMIODARONE
     Route: 065

REACTIONS (12)
  - Hypotension [Unknown]
  - Bradycardia [Unknown]
  - Hypoglycaemia [Unknown]
  - Dry skin [Unknown]
  - Myxoedema [Unknown]
  - Lethargy [Unknown]
  - Tremor [Unknown]
  - Oedema peripheral [Recovering/Resolving]
  - Periorbital oedema [Recovering/Resolving]
  - Hypothyroidism [Unknown]
  - Adrenal insufficiency [Unknown]
  - Hypothermia [Unknown]
